FAERS Safety Report 19226127 (Version 1)
Quarter: 2021Q2

REPORT INFORMATION
  Report Type: Spontaneous
  Country: TN (occurrence: PL)
  Receive Date: 20210506
  Receipt Date: 20210506
  Transmission Date: 20210717
  Serious: Yes (Hospitalization)
  Sender: FDA-Public Use
  Company Number: TN-ABBVIE-21K-160-3891481-00

PATIENT
  Age: 43 Year
  Sex: Male

DRUGS (1)
  1. ADALIMUMAB [Suspect]
     Active Substance: ADALIMUMAB
     Indication: SPONDYLITIS
     Route: 058
     Dates: end: 201901

REACTIONS (1)
  - Takayasu^s arteritis [Recovered/Resolved]

NARRATIVE: CASE EVENT DATE: 201901
